FAERS Safety Report 8169936-2 (Version None)
Quarter: 2012Q1

REPORT INFORMATION
  Report Type: 
  Country: None (occurrence: None)
  Receive Date: 20120228
  Receipt Date: 20120228
  Transmission Date: 20120608
  Serious: No
  Sender: FDA-Public Use
  Company Number: None

PATIENT
  Sex: Male

DRUGS (1)
  1. RANIBIZUMAB [Suspect]
     Indication: DIABETIC RETINAL OEDEMA
     Dosage: .05ML
     Route: 047
     Dates: start: 20120104, end: 20120208

REACTIONS (2)
  - INJECTION SITE IRRITATION [None]
  - FEELING ABNORMAL [None]
